FAERS Safety Report 5829162-6 (Version None)
Quarter: 2008Q3

REPORT INFORMATION
  Report Type: 
  Country: None (occurrence: None)
  Receive Date: 20080731
  Receipt Date: 20080722
  Transmission Date: 20090109
  Serious: Yes (Hospitalization)
  Sender: FDA-Public Use
  Company Number: US-ABBOTT-08P-163-0464656-00

PATIENT
  Age: 61 Year
  Sex: Female
  Weight: 64.922 kg

DRUGS (2)
  1. SYNTHROID [Suspect]
     Indication: HYPOTHYROIDISM
     Route: 048
  2. ENTECORT [Concomitant]
     Indication: INFLAMMATION
     Route: 048

REACTIONS (6)
  - COELIAC DISEASE [None]
  - COLITIS [None]
  - DEHYDRATION [None]
  - DIARRHOEA [None]
  - RENAL DISORDER [None]
  - WEIGHT DECREASED [None]
